FAERS Safety Report 14411560 (Version 1)
Quarter: 2018Q1

REPORT INFORMATION
  Report Type: Report from Study
  Country: FR (occurrence: FR)
  Receive Date: 20180119
  Receipt Date: 20180119
  Transmission Date: 20180509
  Serious: Yes (Congenital Anomaly, Other)
  Sender: FDA-Public Use
  Company Number: FR-VIIV HEALTHCARE LIMITED-FR2018GSK006854

PATIENT
  Sex: Female
  Weight: 2.2 kg

DRUGS (4)
  1. ABACAVIR SULFATE + LAMIVUDINE [Suspect]
     Active Substance: ABACAVIR SULFATE\LAMIVUDINE
     Indication: HIV INFECTION
     Dosage: UNK
     Dates: end: 20170129
  2. NORVIR [Suspect]
     Active Substance: RITONAVIR
     Indication: HIV INFECTION
     Dosage: 100 MG, UNK
     Route: 065
     Dates: end: 20170129
  3. PREZISTA [Suspect]
     Active Substance: DARUNAVIR ETHANOLATE
     Indication: HIV INFECTION
     Dosage: UNK
     Route: 065
     Dates: end: 20170129
  4. REYATAZ [Suspect]
     Active Substance: ATAZANAVIR SULFATE
     Indication: HIV INFECTION
     Dosage: UNK
     Route: 065
     Dates: end: 20170129

REACTIONS (9)
  - Foetal growth restriction [Unknown]
  - Acoustic stimulation tests abnormal [Unknown]
  - Congenital naevus [Unknown]
  - Breast disorder [Unknown]
  - Foetal exposure during pregnancy [Unknown]
  - Dermatitis exfoliative generalised [Unknown]
  - Eosinophilia [Unknown]
  - Low set ears [Unknown]
  - Left ventricular dilatation [Unknown]

NARRATIVE: CASE EVENT DATE: 20170129
